FAERS Safety Report 6077628-9 (Version None)
Quarter: 2009Q1

REPORT INFORMATION
  Report Type: 
  Country: None (occurrence: None)
  Receive Date: 20090213
  Receipt Date: 20090211
  Transmission Date: 20090719
  Serious: Yes (Hospitalization)
  Sender: FDA-Public Use
  Company Number: DK-JNJFOC-20090200931

PATIENT
  Age: 48 Year
  Sex: Male

DRUGS (1)
  1. INFLIXIMAB [Suspect]
     Indication: PSORIASIS
     Dosage: WAS ON INFLIXIMAB FOR 3 YEARS
     Route: 042

REACTIONS (1)
  - LEGIONELLA INFECTION [None]
